FAERS Safety Report 6882204-1 (Version None)
Quarter: 2010Q3

REPORT INFORMATION
  Report Type: 
  Country: None (occurrence: None)
  Receive Date: 20100729
  Receipt Date: 20100720
  Transmission Date: 20110219
  Serious: Yes (Other)
  Sender: FDA-Public Use
  Company Number: JP-PFIZER INC-2010078533

PATIENT
  Age: 66 Year
  Sex: Female

DRUGS (8)
  1. ZITHROMAC SR [Suspect]
     Indication: BRONCHITIS
     Dosage: 2 G, SINGLE
     Route: 048
     Dates: start: 20100622, end: 20100622
  2. ZITHROMAC SR [Suspect]
     Indication: NASOPHARYNGITIS
  3. INSULIN [Concomitant]
  4. CONIEL [Concomitant]
     Indication: HYPERTENSION
     Dosage: 8 MG/DAY
     Route: 048
  5. TANATRIL ^TANABE^ [Concomitant]
     Indication: HYPERTENSION
     Dosage: 10 MG/DAY
     Route: 048
  6. MELBIN [Concomitant]
     Indication: DIABETES MELLITUS
     Dosage: 500 MG/DAY
     Route: 048
  7. THEOLONG [Concomitant]
     Indication: BRONCHITIS
     Dosage: 200 MG/DAY
     Route: 048
  8. BAZAROIN [Concomitant]
     Indication: BRONCHITIS
     Dosage: 30 MG/DAY
     Route: 048

REACTIONS (1)
  - HYPERGLYCAEMIA [None]
